FAERS Safety Report 9928220 (Version 1)
Quarter: 2014Q1

REPORT INFORMATION
  Report Type: Spontaneous
  Country: CN (occurrence: CN)
  Receive Date: 20140227
  Receipt Date: 20140227
  Transmission Date: 20141002
  Serious: Yes (Hospitalization)
  Sender: FDA-Public Use
  Company Number: CN-BAYER-2014-028645

PATIENT
  Age: 51 Year
  Sex: Male

DRUGS (4)
  1. ACETYLSALICYLIC ACID (} 100 MG) [Suspect]
     Indication: CEREBROVASCULAR ACCIDENT PROPHYLAXIS
  2. ATORVASTATIN [Concomitant]
     Indication: ARTERIOSCLEROSIS
  3. LOSARTAN [Concomitant]
     Indication: HYPERTENSION
  4. GLICLAZIDE [Concomitant]
     Indication: DIABETES MELLITUS

REACTIONS (3)
  - Transient ischaemic attack [Recovered/Resolved]
  - Muscular weakness [Recovered/Resolved]
  - Dysarthria [Recovered/Resolved]
